FAERS Safety Report 15355374 (Version 1)
Quarter: 2018Q3

REPORT INFORMATION
  Report Type: Spontaneous
  Country: US (occurrence: US)
  Receive Date: 20180830
  Receipt Date: 20180830
  Transmission Date: 20181010
  Serious: Yes (Other)
  Sender: FDA-Public Use
  Company Number: None

PATIENT
  Age: 82 Year
  Sex: Male

DRUGS (1)
  1. OBINITUZUMAB [Suspect]
     Active Substance: OBINUTUZUMAB
     Indication: CHEMOTHERAPY
     Dosage: ?          OTHER FREQUENCY:INFUSION;?
     Route: 042
     Dates: start: 20180827, end: 20180829

REACTIONS (4)
  - Chills [None]
  - Infusion related reaction [None]
  - Chest discomfort [None]
  - Abdominal discomfort [None]

NARRATIVE: CASE EVENT DATE: 20180828
